FAERS Safety Report 7921912-8 (Version None)
Quarter: 2011Q4

REPORT INFORMATION
  Report Type: 
  Country: None (occurrence: None)
  Receive Date: 20111117
  Receipt Date: 20111027
  Transmission Date: 20120403
  Serious: Yes (Other)
  Sender: FDA-Public Use
  Company Number: US-SANOFI-AVENTIS-2011SA072235

PATIENT
  Sex: Female

DRUGS (3)
  1. LANTUS [Suspect]
     Dosage: 30-40 UNITS CURRENTLY AND 50 UNITS PREVIOUSLY
     Route: 051
  2. PERCOCET [Concomitant]
  3. SOLOSTAR [Suspect]

REACTIONS (1)
  - DEVICE MALFUNCTION [None]
